FAERS Safety Report 10674064 (Version 1)
Quarter: 2014Q4

REPORT INFORMATION
  Report Type: Spontaneous
  Country: US (occurrence: None)
  Receive Date: 20141222
  Receipt Date: 20141222
  Transmission Date: 20150529
  Serious: Yes (Other)
  Sender: FDA-Public Use
  Company Number: ADR-2014-02375

PATIENT
  Age: 8 Year
  Sex: Male

DRUGS (2)
  1. PHENOL. [Suspect]
     Active Substance: PHENOL
  2. BACLOFEN INTRATHECAL [Suspect]
     Active Substance: BACLOFEN
     Indication: MUSCLE SPASTICITY
     Dosage: 183MCG/DAY, 96MCG/DAY

REACTIONS (4)
  - Device breakage [None]
  - Priapism [None]
  - Hypertonia [None]
  - Drug withdrawal syndrome [None]

NARRATIVE: CASE EVENT DATE: 20010101
